FAERS Safety Report 8394515-1 (Version None)
Quarter: 2012Q2

REPORT INFORMATION
  Report Type: 
  Country: None (occurrence: None)
  Receive Date: 20120530
  Receipt Date: 20120517
  Transmission Date: 20120825
  Serious: Yes (Hospitalization, Other)
  Sender: FDA-Public Use
  Company Number: US-ELI_LILLY_AND_COMPANY-US201205007063

PATIENT
  Sex: Female

DRUGS (10)
  1. LORAZEPAM [Concomitant]
  2. ZOLPIDEM [Concomitant]
  3. PREMARIN [Concomitant]
  4. FORTEO [Suspect]
     Indication: OSTEOPOROSIS
     Dosage: 20 UG, QD
     Dates: start: 20120301
  5. FORTEO [Suspect]
     Dosage: 20 UG, QD
  6. ELMIRON [Concomitant]
  7. SIMVASTATIN [Concomitant]
  8. FELODIPINE [Concomitant]
  9. TRAMADOL HCL [Concomitant]
  10. TESTOSTERONE [Concomitant]

REACTIONS (4)
  - PAIN [None]
  - PANCREATITIS [None]
  - COMPRESSION FRACTURE [None]
  - CONVULSION [None]
